FAERS Safety Report 6695902-X (Version None)
Quarter: 2010Q2

REPORT INFORMATION
  Report Type: 
  Country: None (occurrence: None)
  Receive Date: 20100426
  Receipt Date: 20091222
  Transmission Date: 20101027
  Serious: No
  Sender: FDA-Public Use
  Company Number: A0836425A

PATIENT
  Age: 58 Year
  Sex: Male

DRUGS (5)
  1. ZOFRAN [Suspect]
     Indication: PROPHYLAXIS OF NAUSEA AND VOMITING
     Dosage: 8MG AS REQUIRED
     Route: 048
     Dates: start: 20090101
  2. PROSCAR [Concomitant]
  3. FLONASE [Concomitant]
  4. CARDURA [Concomitant]
  5. CLARITIN [Concomitant]

REACTIONS (2)
  - PHOTOPSIA [None]
  - VITREOUS FLOATERS [None]
